FAERS Safety Report 22097990 (Version 1)
Quarter: 2023Q1

REPORT INFORMATION
  Report Type: Spontaneous
  Country: US (occurrence: None)
  Receive Date: 20230315
  Receipt Date: 20230315
  Transmission Date: 20230417
  Serious: Yes (Other)
  Sender: FDA-Public Use
  Company Number: 2023A056338

PATIENT
  Sex: Male
  Weight: 90.7 kg

DRUGS (2)
  1. PULMICORT FLEXHALER [Suspect]
     Active Substance: BUDESONIDE
     Indication: Cough
     Dosage: 90MCG 2 PUFFS
     Route: 055
  2. IPRATROPI/ALB [Concomitant]
     Indication: Cough
     Dosage: 0.5/3MG INH SL

REACTIONS (6)
  - Seizure [Unknown]
  - Muscular weakness [Unknown]
  - Chills [Unknown]
  - Hypersensitivity [Unknown]
  - Cough [Unknown]
  - Intentional product misuse [Unknown]
